FAERS Safety Report 18569624 (Version 1)
Quarter: 2020Q4

REPORT INFORMATION
  Report Type: Spontaneous
  Country: LT (occurrence: LT)
  Receive Date: 20201202
  Receipt Date: 20201202
  Transmission Date: 20210114
  Serious: Yes (Hospitalization)
  Sender: FDA-Public Use
  Company Number: LT-SA-2020SA339018

PATIENT

DRUGS (3)
  1. PAROXETINE HYDROCHLORIDE. [Suspect]
     Active Substance: PAROXETINE HYDROCHLORIDE
     Indication: COMPLETED SUICIDE
     Dosage: UNK
     Route: 048
     Dates: start: 20201026, end: 20201026
  2. ZOLPIDEM TARTRATE. [Suspect]
     Active Substance: ZOLPIDEM TARTRATE
     Indication: COMPLETED SUICIDE
     Dosage: UNK
     Route: 048
     Dates: start: 20201026, end: 20201026
  3. CHLORPROTHIXENE [Suspect]
     Active Substance: CHLORPROTHIXENE
     Indication: COMPLETED SUICIDE
     Dosage: UNK
     Route: 048
     Dates: start: 20201026, end: 20201026

REACTIONS (4)
  - Intentional overdose [Unknown]
  - Off label use [Unknown]
  - Dyspnoea [Recovered/Resolved]
  - Somnolence [Recovered/Resolved]

NARRATIVE: CASE EVENT DATE: 20201026
